FAERS Safety Report 10799240 (Version 1)
Quarter: 2015Q1

REPORT INFORMATION
  Report Type: Spontaneous
  Country: US (occurrence: US)
  Receive Date: 20150216
  Receipt Date: 20150216
  Transmission Date: 20150721
  Serious: No
  Sender: FDA-Public Use
  Company Number: US-ALLERGAN-1400266US

PATIENT
  Sex: Male

DRUGS (12)
  1. RESTASIS [Suspect]
     Active Substance: CYCLOSPORINE
     Dosage: 2 GTT, BID
     Route: 047
     Dates: start: 20131126, end: 20131202
  2. COMBIGAN[R] [Concomitant]
     Active Substance: BRIMONIDINE TARTRATE\TIMOLOL MALEATE
     Indication: GLAUCOMA
     Dosage: 2 GTT, UNK
     Route: 047
  3. PILOCARPINE [Concomitant]
     Active Substance: PILOCARPINE
     Indication: GLAUCOMA
     Dosage: 1 GTT, BID
     Route: 047
  4. REFRESH LIQUIGEL [Concomitant]
     Active Substance: CARBOXYMETHYLCELLULOSE SODIUM
     Indication: DRY EYE
     Dosage: 2 GTT, PRN
     Route: 047
  5. METHAZOLOMIDE [Concomitant]
     Indication: INTRAOCULAR PRESSURE INCREASED
     Dosage: 50 MG, UNK
     Route: 048
  6. PILOCARPINE [Concomitant]
     Active Substance: PILOCARPINE
     Dosage: 1 GTT, TID
     Route: 047
  7. REFRESH OPTIVE ADVANCED [Concomitant]
     Active Substance: CARBOXYMETHYLCELLULOSE SODIUM\GLYCERIN\POLYSORBATE 80
     Indication: DRY EYE
     Dosage: 2 GTT, PRN
     Route: 047
  8. NAMENDA [Concomitant]
     Active Substance: MEMANTINE HYDROCHLORIDE
     Indication: EYE DISORDER
     Dosage: 5 MG, UNK
     Route: 048
  9. METHAZOLOMIDE [Concomitant]
     Dosage: 25 MG, QPM
     Route: 048
  10. RESTASIS [Suspect]
     Active Substance: CYCLOSPORINE
     Dosage: 2 GTT, UNK
     Route: 047
     Dates: start: 20131202, end: 20131204
  11. REFRESH TEARS [Concomitant]
     Active Substance: CARBOXYMETHYLCELLULOSE SODIUM
     Indication: DRY EYE
     Dosage: 2 GTT, PRN
     Route: 047
  12. RESTASIS [Suspect]
     Active Substance: CYCLOSPORINE
     Indication: DRY EYE
     Dosage: 2 GTT, BID
     Route: 047
     Dates: start: 20131204

REACTIONS (3)
  - Instillation site pain [Recovered/Resolved]
  - Incorrect product storage [Unknown]
  - Inappropriate schedule of drug administration [Unknown]
